FAERS Safety Report 7284289-X (Version None)
Quarter: 2011Q1

REPORT INFORMATION
  Report Type: 
  Country: None (occurrence: None)
  Receive Date: 20110209
  Receipt Date: 20110131
  Transmission Date: 20110831
  Serious: Yes (Hospitalization, Other)
  Sender: FDA-Public Use
  Company Number: US-ASTRAZENECA-2011SE05399

PATIENT
  Age: 87 Year
  Sex: Female
  Weight: 48.1 kg

DRUGS (11)
  1. TRICOR [Suspect]
  2. FUROSEMIDE [Concomitant]
  3. CARVEDILOL [Concomitant]
     Indication: CARDIAC DISORDER
  4. LEVOTHYROXINE SODIUM [Concomitant]
  5. OXYCONTIN [Concomitant]
     Indication: PAIN
  6. LYRICA [Suspect]
     Indication: NERVE INJURY
     Route: 048
     Dates: start: 20080101
  7. LYRICA [Suspect]
     Route: 048
  8. LYRICA [Suspect]
     Route: 048
  9. CRESTOR [Suspect]
     Route: 048
  10. BENADRYL [Suspect]
  11. POTASSIUM CHLORIDE [Concomitant]

REACTIONS (11)
  - CONTRAST MEDIA ALLERGY [None]
  - EYE DISORDER [None]
  - ASTHENIA [None]
  - GENERALISED ERYTHEMA [None]
  - PAIN IN EXTREMITY [None]
  - MUSCLE SPASMS [None]
  - FATIGUE [None]
  - CALCINOSIS [None]
  - RASH GENERALISED [None]
  - SOMNOLENCE [None]
  - HEADACHE [None]
